FAERS Safety Report 7025552-7 (Version None)
Quarter: 2010Q4

REPORT INFORMATION
  Report Type: 
  Country: None (occurrence: None)
  Receive Date: 20101003
  Receipt Date: 20100924
  Transmission Date: 20110411
  Serious: Yes (Other)
  Sender: FDA-Public Use
  Company Number: PHHY2010US64258

PATIENT
  Sex: Female

DRUGS (1)
  1. RECLAST [Suspect]
     Dosage: UNK
     Dates: start: 20100727

REACTIONS (4)
  - ARTHROPATHY [None]
  - ARTIFICIAL CROWN PROCEDURE [None]
  - TOOTH DISCOLOURATION [None]
  - TOOTH FRACTURE [None]
